FAERS Safety Report 6925071-X (Version None)
Quarter: 2010Q3

REPORT INFORMATION
  Report Type: 
  Country: None (occurrence: None)
  Receive Date: 20100816
  Receipt Date: 20100804
  Transmission Date: 20110219
  Serious: Yes (Other)
  Sender: FDA-Public Use
  Company Number: DE-SANOFI-AVENTIS-2010SA046478

PATIENT
  Age: 65 Year
  Sex: Male

DRUGS (3)
  1. OXALIPLATIN [Suspect]
     Route: 042
  2. AVASTIN [Suspect]
  3. FLUOROURACIL [Suspect]

REACTIONS (1)
  - DEMYELINATING POLYNEUROPATHY [None]
